FAERS Safety Report 7732194-4 (Version None)
Quarter: 2011Q3

REPORT INFORMATION
  Report Type: 
  Country: None (occurrence: None)
  Receive Date: 20110906
  Receipt Date: 20110816
  Transmission Date: 20111222
  Serious: No
  Sender: FDA-Public Use
  Company Number: US-AMGEN-USASP2011032061

PATIENT
  Age: 50 Year
  Sex: Female
  Weight: 65.533 kg

DRUGS (2)
  1. PROLIA [Suspect]
     Indication: OSTEOPOROSIS POSTMENOPAUSAL
     Dosage: 60 MG, Q6MO
     Dates: start: 20110331, end: 20110331
  2. SYMBICORT [Concomitant]
     Dosage: UNK UNK, BID

REACTIONS (1)
  - ARTHRALGIA [None]
